FAERS Safety Report 18682754 (Version 5)
Quarter: 2022Q1

REPORT INFORMATION
  Report Type: Spontaneous
  Country: US (occurrence: US)
  Receive Date: 20201230
  Receipt Date: 20220311
  Transmission Date: 20220424
  Serious: No
  Sender: FDA-Public Use
  Company Number: US-GLAXOSMITHKLINE-US2020AMR253609

PATIENT
  Age: 78 Year
  Sex: Female

DRUGS (5)
  1. ZEJULA [Interacting]
     Active Substance: NIRAPARIB
     Indication: Ovarian cancer
     Dosage: 200 MG, QD
     Dates: start: 20201207
  2. ZEJULA [Interacting]
     Active Substance: NIRAPARIB
     Dosage: 100 MG, QD
     Route: 048
     Dates: start: 20210103, end: 20210104
  3. ZEJULA [Interacting]
     Active Substance: NIRAPARIB
     Dosage: 100 MG, QD(100MG DAILY, SOMETIMES TAKES 200 MG)
  4. ZEJULA [Interacting]
     Active Substance: NIRAPARIB
     Dosage: 100 MG, QD
     Route: 048
     Dates: start: 20211227
  5. GABAPENTIN ENACARBIL [Interacting]
     Active Substance: GABAPENTIN ENACARBIL
     Indication: Neuralgia
     Dosage: UNK

REACTIONS (15)
  - Paraesthesia [Unknown]
  - Nerve injury [Unknown]
  - Neuralgia [Unknown]
  - Chills [Not Recovered/Not Resolved]
  - Nervousness [Not Recovered/Not Resolved]
  - Drug intolerance [Unknown]
  - Adverse drug reaction [Unknown]
  - Visual impairment [Unknown]
  - Peripheral swelling [Unknown]
  - Alopecia [Unknown]
  - Potentiating drug interaction [Unknown]
  - Drug monitoring procedure incorrectly performed [Unknown]
  - Inappropriate schedule of product administration [Unknown]
  - Intentional product use issue [Unknown]
  - Product dose omission issue [Unknown]

NARRATIVE: CASE EVENT DATE: 20220309
